FAERS Safety Report 5871594-4 (Version None)
Quarter: 2008Q3

REPORT INFORMATION
  Report Type: 
  Country: None (occurrence: None)
  Receive Date: 20080905
  Receipt Date: 20080617
  Transmission Date: 20090109
  Serious: No
  Sender: FDA-Public Use
  Company Number: A0733400A

PATIENT
  Age: 68 Year
  Sex: Male

DRUGS (7)
  1. REQUIP [Suspect]
     Indication: RESTLESS LEGS SYNDROME
     Dosage: .25MG SINGLE DOSE
     Route: 048
     Dates: start: 20080613, end: 20080613
  2. LIPITOR [Concomitant]
  3. SYNTHROID [Concomitant]
  4. PROZAC [Concomitant]
  5. METFORMIN HCL [Concomitant]
  6. FLOMAX [Concomitant]
  7. NAPROXEN [Concomitant]

REACTIONS (2)
  - INSOMNIA [None]
  - MUSCLE SPASMS [None]
